FAERS Safety Report 12395959 (Version 1)
Quarter: 2016Q2

REPORT INFORMATION
  Report Type: Spontaneous
  Country: PL (occurrence: PL)
  Receive Date: 20160523
  Receipt Date: 20160523
  Transmission Date: 20160815
  Serious: Yes (Other)
  Sender: FDA-Public Use
  Company Number: PL-ALLERGAN-1657342US

PATIENT
  Age: 39 Year
  Sex: Female

DRUGS (2)
  1. LEVOSERT [Suspect]
     Active Substance: LEVONORGESTREL
     Indication: CONTRACEPTION
     Dosage: 20 MICROGRAMS PER 24 HOURS
     Route: 015
     Dates: start: 20160504, end: 20160504
  2. LEVOSERT [Suspect]
     Active Substance: LEVONORGESTREL
     Indication: HAEMORRHAGE

REACTIONS (4)
  - Abdominal pain lower [Recovered/Resolved]
  - Off label use [Unknown]
  - Device dislocation [Recovered/Resolved]
  - Haemorrhage [Recovered/Resolved]
